FAERS Safety Report 14322560 (Version 2)
Quarter: 2018Q2

REPORT INFORMATION
  Report Type: Spontaneous
  Country: US (occurrence: US)
  Receive Date: 20171225
  Receipt Date: 20180402
  Transmission Date: 20180711
  Serious: No
  Sender: FDA-Public Use
  Company Number: US-ASTELLAS-2017US048286

PATIENT
  Sex: Male

DRUGS (1)
  1. XTANDI [Suspect]
     Active Substance: ENZALUTAMIDE
     Indication: PROSTATE CANCER
     Route: 048
     Dates: start: 20160526

REACTIONS (5)
  - Visual impairment [Unknown]
  - Nocturia [Unknown]
  - Hyperhidrosis [Unknown]
  - Gait disturbance [Unknown]
  - Dysgeusia [Unknown]
